FAERS Safety Report 10220944 (Version 1)
Quarter: 2014Q2

REPORT INFORMATION
  Report Type: Spontaneous
  Country: US (occurrence: None)
  Receive Date: 20140605
  Receipt Date: 20140605
  Transmission Date: 20141212
  Serious: Yes (Hospitalization)
  Sender: FDA-Public Use
  Company Number: None

PATIENT
  Age: 21 Year
  Sex: Female
  Weight: 56.7 kg

DRUGS (1)
  1. DICLOFENAC SODIUM/MISOPROSTOL [Suspect]
     Indication: PAIN IN JAW
     Route: 048
     Dates: start: 20140410, end: 20140424

REACTIONS (1)
  - Uterine contractions abnormal [None]
